FAERS Safety Report 4567111-1 (Version None)
Quarter: 2005Q1

REPORT INFORMATION
  Report Type: 
  Country: None (occurrence: None)
  Receive Date: 20050201
  Receipt Date: 20050120
  Transmission Date: 20050727
  Serious: Yes (Death)
  Sender: FDA-Public Use
  Company Number: DE-JNJFOC-20050105222

PATIENT
  Age: 42 Year
  Sex: Female

DRUGS (6)
  1. RISPERDAL [Suspect]
     Dosage: TAPERED DOWN FROM 6MG
     Route: 049
  2. DIPIPERON [Suspect]
     Route: 049
  3. DELIX [Concomitant]
     Route: 049
  4. SPIRONOLACTONE [Concomitant]
  5. AMOXIPEN [Concomitant]
  6. TOREM [Concomitant]

REACTIONS (4)
  - CARDIAC FAILURE [None]
  - ERYTHEMA [None]
  - GALACTORRHOEA [None]
  - HYPERPROLACTINAEMIA [None]
